FAERS Safety Report 7964047-0 (Version None)
Quarter: 2011Q4

REPORT INFORMATION
  Report Type: 
  Country: None (occurrence: None)
  Receive Date: 20111208
  Receipt Date: 20111130
  Transmission Date: 20120403
  Serious: Yes (Hospitalization)
  Sender: FDA-Public Use
  Company Number: GB-SP-2011-11778

PATIENT
  Age: 70 Year
  Sex: Male

DRUGS (1)
  1. TICE BCG [Suspect]
     Indication: BLADDER CANCER
     Dosage: NOT REPORTED
     Route: 043

REACTIONS (7)
  - NAUSEA [None]
  - SUPRAPUBIC PAIN [None]
  - CHILLS [None]
  - BOVINE TUBERCULOSIS [None]
  - LETHARGY [None]
  - WEIGHT DECREASED [None]
  - PYREXIA [None]
